FAERS Safety Report 8546386 (Version 2)
Quarter: 2012Q4

REPORT INFORMATION
  Report Type: 
  Country: US (occurrence: US)
  Receive Date: 20120504
  Receipt Date: 20120907
  Transmission Date: 20130627
  Serious: Yes (Other)
  Sender: FDA-Public Use
  Company Number: US-BAYER-2012-042380

PATIENT
  Age: 25 Year
  Sex: Female
  Weight: 83.9 kg

DRUGS (10)
  1. OCELLA [Suspect]
     Indication: CONTRACEPTION
     Dosage: UNK
     Dates: start: 20090918, end: 20100120
  2. OCELLA [Suspect]
     Indication: OVARIAN CYST
  3. OCELLA [Suspect]
     Indication: MENSTRUAL CYCLE MANAGEMENT
  4. YASMIN [Suspect]
     Indication: CONTRACEPTION
     Dosage: UNK
     Dates: start: 20070717, end: 20080522
  5. YASMIN [Suspect]
     Indication: OVARIAN CYST
  6. YASMIN [Suspect]
     Indication: MENSTRUAL CYCLE MANAGEMENT
  7. PERCOCET [Concomitant]
     Indication: PAIN
     Dosage: UNK
     Route: 048
     Dates: start: 20100621
  8. TYLENOL #3 [Concomitant]
     Dosage: UNK
     Route: 048
  9. PEPCID [Concomitant]
     Dosage: UNK UNK, PRN
     Route: 048
     Dates: start: 20100623
  10. IBUPROFEN [Concomitant]
     Indication: PAIN
     Dosage: 200 mg, PRN
     Route: 048
     Dates: start: 20100621

REACTIONS (6)
  - Cholecystitis acute [None]
  - Cholelithiasis [None]
  - Abdominal pain upper [None]
  - Gallbladder disorder [None]
  - Pain [None]
  - Injury [None]
